FAERS Safety Report 9925035 (Version 1)
Quarter: 2014Q1

REPORT INFORMATION
  Report Type: Spontaneous
  Country: FR (occurrence: FR)
  Receive Date: 20140226
  Receipt Date: 20140226
  Transmission Date: 20141002
  Serious: Yes (Hospitalization)
  Sender: FDA-Public Use
  Company Number: FR-ELI_LILLY_AND_COMPANY-FR201402005009

PATIENT
  Age: 54 Year
  Sex: Male

DRUGS (15)
  1. GEMZAR [Suspect]
     Indication: CHOLANGIOCARCINOMA
     Dosage: UNK, UNKNOWN
     Route: 065
     Dates: start: 20131217, end: 20140103
  2. MOTILIUM                           /00498201/ [Concomitant]
     Indication: PRODUCT USED FOR UNKNOWN INDICATION
     Dosage: 10 MG, TID
     Route: 065
     Dates: start: 20131230
  3. DUPHALAC                           /00163401/ [Concomitant]
     Indication: PRODUCT USED FOR UNKNOWN INDICATION
     Dosage: 2 DF, QD
     Route: 065
     Dates: start: 20131223
  4. SOLUPRED                           /00016201/ [Concomitant]
     Indication: PROPHYLAXIS AGAINST TRANSPLANT REJECTION
     Dosage: 20 MG, QD
     Route: 065
     Dates: start: 20131223
  5. EMLAPATCH [Concomitant]
     Indication: PRODUCT USED FOR UNKNOWN INDICATION
     Dosage: 1 DF, QD
     Dates: start: 20131223
  6. KARDEGIC [Concomitant]
     Indication: PRODUCT USED FOR UNKNOWN INDICATION
     Dosage: 75 MG, QD
     Route: 065
     Dates: start: 20131223
  7. LOVENOX [Concomitant]
     Indication: PRODUCT USED FOR UNKNOWN INDICATION
     Dosage: 4000 IU, BID
     Route: 065
     Dates: start: 20131223
  8. ARANESP [Concomitant]
     Indication: PRODUCT USED FOR UNKNOWN INDICATION
     Dosage: 100 UG, WEEKLY (1/W)
     Route: 065
     Dates: start: 20131223
  9. SODIUM BICARBONATE [Concomitant]
     Indication: PRODUCT USED FOR UNKNOWN INDICATION
     Dosage: 1 G, QD
     Route: 065
     Dates: start: 20131223
  10. NORMACOL                           /01713401/ [Concomitant]
     Indication: PRODUCT USED FOR UNKNOWN INDICATION
     Dosage: 1 DF, PRN
     Route: 065
     Dates: start: 20131212
  11. TOPALGIC LP [Concomitant]
     Indication: PRODUCT USED FOR UNKNOWN INDICATION
     Dosage: 200 MG, BID
     Route: 065
     Dates: start: 20131212
  12. KAYEXALATE [Concomitant]
     Indication: PRODUCT USED FOR UNKNOWN INDICATION
     Dosage: 15 G, QD
     Route: 065
     Dates: start: 20130202
  13. INEXIUM [Concomitant]
     Indication: PRODUCT USED FOR UNKNOWN INDICATION
     Dosage: 40 MG, QD
     Route: 065
     Dates: start: 20131114
  14. CELLCEPT                           /01275102/ [Concomitant]
     Indication: PROPHYLAXIS AGAINST TRANSPLANT REJECTION
     Dosage: 1 G, BID
     Route: 065
     Dates: start: 20131113
  15. TENORMINE [Concomitant]
     Indication: CARDIAC DISORDER
     Dosage: 50 MG, QD
     Route: 065
     Dates: start: 20051205

REACTIONS (4)
  - Thrombotic microangiopathy [Not Recovered/Not Resolved]
  - Renal failure acute [Unknown]
  - Anaemia [Unknown]
  - Thrombocytopenia [Unknown]
